FAERS Safety Report 5151152-X (Version None)
Quarter: 2006Q4

REPORT INFORMATION
  Report Type: 
  Country: None (occurrence: None)
  Receive Date: 20061115
  Receipt Date: 20061109
  Transmission Date: 20070319
  Serious: Yes (Life-Threatening)
  Sender: FDA-Public Use
  Company Number: 2006AP05355

PATIENT
  Age: 31 Year
  Sex: Female

DRUGS (2)
  1. NAROPIN [Suspect]
     Indication: CAESAREAN SECTION
     Route: 065
     Dates: start: 20050501
  2. NAROPIN [Suspect]
     Indication: SPINAL ANAESTHESIA
     Route: 065
     Dates: start: 20050501

REACTIONS (2)
  - APALLIC SYNDROME [None]
  - SHOCK [None]
